FAERS Safety Report 7098062-9 (Version None)
Quarter: 2010Q4

REPORT INFORMATION
  Report Type: 
  Country: None (occurrence: None)
  Receive Date: 20101112
  Receipt Date: 20101104
  Transmission Date: 20110411
  Serious: Yes (Hospitalization)
  Sender: FDA-Public Use
  Company Number: US-US-EMD SERONO, INC.-7026261

PATIENT
  Sex: Female
  Weight: 75 kg

DRUGS (6)
  1. REBIF [Suspect]
     Indication: MULTIPLE SCLEROSIS
     Route: 058
     Dates: start: 20040503, end: 20100101
  2. REBIF [Suspect]
     Route: 058
     Dates: start: 20100201
  3. AMPYRA [Concomitant]
     Indication: MULTIPLE SCLEROSIS
     Dates: start: 20070101
  4. AMBINEX [Concomitant]
     Indication: BLADDER DISORDER
  5. TRAZODONE [Concomitant]
     Indication: INSOMNIA
  6. BLOOD PRESSURE MEDICATIONS [Concomitant]
     Dates: start: 20091101, end: 20100101

REACTIONS (4)
  - CHILLS [None]
  - HYPERTENSION [None]
  - PARVOVIRUS INFECTION [None]
  - WEIGHT DECREASED [None]
